FAERS Safety Report 8348287-7 (Version None)
Quarter: 2012Q2

REPORT INFORMATION
  Report Type: 
  Country: None (occurrence: None)
  Receive Date: 20120509
  Receipt Date: 20120426
  Transmission Date: 20120825
  Serious: Yes (Other)
  Sender: FDA-Public Use
  Company Number: JP-MYLANLABS-2012S1008443

PATIENT
  Age: 46 Year
  Sex: Female

DRUGS (2)
  1. CARBOPLATIN [Suspect]
     Indication: OVARIAN CANCER
     Route: 041
     Dates: start: 20120401
  2. PACLITAXEL [Suspect]
     Indication: OVARIAN CANCER
     Route: 041
     Dates: start: 20120401

REACTIONS (2)
  - VISUAL IMPAIRMENT [None]
  - EAR PAIN [None]
